FAERS Safety Report 10983577 (Version 2)
Quarter: 2015Q2

REPORT INFORMATION
  Report Type: Report from Study
  Country: AU (occurrence: AU)
  Receive Date: 20150403
  Receipt Date: 20150417
  Transmission Date: 20150821
  Serious: Yes (Hospitalization)
  Sender: FDA-Public Use
  Company Number: AU-VERTEX PHARMACEUTICALS-2015-000910

PATIENT
  Age: 33 Year
  Sex: Male
  Weight: 72 kg

DRUGS (27)
  1. VX-770 [Suspect]
     Active Substance: IVACAFTOR
     Indication: CYSTIC FIBROSIS
     Dosage: 250 MG, QPM
     Route: 048
     Dates: start: 20140219
  2. HUMALOG [Concomitant]
     Active Substance: INSULIN LISPRO
     Indication: DIABETES MELLITUS
     Dosage: UNK, QD
     Route: 058
     Dates: start: 20130827
  3. SERETIDE [Concomitant]
     Active Substance: FLUTICASONE FUROATE\SALMETEROL XINAFOATE
     Dosage: BID
     Route: 045
     Dates: start: 2003
  4. AZITHROMYCIN [Concomitant]
     Active Substance: AZITHROMYCIN ANHYDROUS
     Indication: PROPHYLAXIS
     Dosage: 500 MG, QW
     Route: 048
  5. VX-809 FDC [Suspect]
     Active Substance: IVACAFTOR
     Indication: CYSTIC FIBROSIS
     Dosage: 600 MG, QD
     Route: 048
     Dates: start: 20140219
  6. HYPERTONIC SALINE SOLUTION [Concomitant]
     Active Substance: SODIUM CHLORIDE
     Indication: CYSTIC FIBROSIS
     Dosage: 6 %, UNK
     Route: 065
     Dates: start: 1998
  7. PREDNISONE. [Concomitant]
     Active Substance: PREDNISONE
     Indication: INFECTIVE PULMONARY EXACERBATION OF CYSTIC FIBROSIS
     Dosage: 50 MG, UNK
     Route: 048
     Dates: start: 20141113, end: 20141117
  8. CIPROFLOXACIN. [Concomitant]
     Active Substance: CIPROFLOXACIN
     Indication: PROPHYLAXIS
  9. VX-770 FDC [Suspect]
     Active Substance: IVACAFTOR
     Indication: CYSTIC FIBROSIS
     Dosage: 250 MG, QAM
     Route: 048
     Dates: start: 20140219
  10. PULMOZYME [Concomitant]
     Active Substance: DORNASE ALFA
     Indication: CYSTIC FIBROSIS
     Dosage: 2.5 MG, QD
     Route: 055
     Dates: start: 2002
  11. CALCIUM CARBONATE. [Concomitant]
     Active Substance: CALCIUM CARBONATE
     Indication: OSTEOPOROSIS
     Dosage: 600 MG, UNK
     Route: 048
     Dates: start: 2002
  12. PREDNISONE. [Concomitant]
     Active Substance: PREDNISONE
     Indication: SINUSITIS
     Dosage: 25 UNK, UNK
     Route: 048
     Dates: start: 20141118, end: 20141122
  13. TOBRAMYCIN. [Concomitant]
     Active Substance: TOBRAMYCIN
     Indication: SINUS OPERATION
     Dosage: 300 MG, UNK
     Route: 055
     Dates: start: 20150101
  14. CREON FORTE [Concomitant]
     Indication: PANCREATIC INSUFFICIENCY
     Dosage: 25000 IU, UNK
     Route: 048
     Dates: start: 2003
  15. PREDNISONE. [Concomitant]
     Active Substance: PREDNISONE
     Dosage: 50 UNK, UNK
     Route: 048
     Dates: start: 20141203, end: 20150107
  16. PREDNISONE. [Concomitant]
     Active Substance: PREDNISONE
     Dosage: 12.5 UNK, UNK
     Route: 048
     Dates: start: 20150118
  17. TOBRAMYCIN. [Concomitant]
     Active Substance: TOBRAMYCIN
     Indication: PROPHYLAXIS
  18. VITABDECK [Concomitant]
     Indication: PANCREATIC INSUFFICIENCY
     Dosage: 2500 UNK, BID
     Route: 048
     Dates: start: 2009
  19. SERETIDE [Concomitant]
     Active Substance: FLUTICASONE FUROATE\SALMETEROL XINAFOATE
     Indication: ASTHMA
     Dosage: BID
     Route: 045
     Dates: start: 2003
  20. NOVORAPID [Concomitant]
     Active Substance: INSULIN ASPART
     Indication: CYSTIC FIBROSIS RELATED DIABETES
     Dosage: UNK
     Route: 065
     Dates: start: 201301, end: 20130826
  21. PREDNISONE. [Concomitant]
     Active Substance: PREDNISONE
     Dosage: 25 UNK, UNK
     Route: 048
     Dates: start: 20150113, end: 20150117
  22. URSODEOXYCHOLIC ACID [Concomitant]
     Active Substance: URSODIOL
     Indication: HEPATIC CIRRHOSIS
     Dosage: 750 MG, UNK
     Route: 065
     Dates: start: 1996
  23. CIPROFLOXACIN. [Concomitant]
     Active Substance: CIPROFLOXACIN
     Indication: SINUS OPERATION
     Dosage: 750 MG, UNK
     Route: 048
     Dates: start: 20150101, end: 20150114
  24. VENTOLIN [Concomitant]
     Active Substance: ALBUTEROL SULFATE
     Indication: ASTHMA
     Dosage: 100 MG, PRN
     Route: 065
     Dates: start: 1998
  25. LEVEMIR [Concomitant]
     Active Substance: INSULIN DETEMIR
     Indication: CYSTIC FIBROSIS RELATED DIABETES
     Dosage: UNK
     Route: 065
     Dates: start: 201307
  26. VENTOLIN [Concomitant]
     Active Substance: ALBUTEROL SULFATE
     Dosage: 5 MG, BID
     Route: 055
     Dates: start: 1995
  27. PREDNISONE. [Concomitant]
     Active Substance: PREDNISONE
     Dosage: 12.5 UNK, UNK
     Route: 048
     Dates: start: 20141123, end: 20141127

REACTIONS (1)
  - Haemoptysis [Recovered/Resolved]

NARRATIVE: CASE EVENT DATE: 20150329
